FAERS Safety Report 4611866-4 (Version None)
Quarter: 2005Q2

REPORT INFORMATION
  Report Type: 
  Country: None (occurrence: None)
  Receive Date: 20050308
  Receipt Date: 20050125
  Transmission Date: 20051028
  Serious: Yes (Other)
  Sender: FDA-Public Use
  Company Number: 2005UW01348

PATIENT
  Age: 49 Year
  Sex: Male

DRUGS (1)
  1. CRESTOR [Suspect]
     Dosage: 10 MG PO
     Route: 048

REACTIONS (4)
  - HEADACHE [None]
  - HEPATIC PAIN [None]
  - NEURALGIA [None]
  - PARAESTHESIA [None]
